FAERS Safety Report 9815600 (Version 1)
Quarter: 2014Q1

REPORT INFORMATION
  Report Type: Spontaneous
  Country: US (occurrence: US)
  Receive Date: 20140114
  Receipt Date: 20140114
  Transmission Date: 20141002
  Serious: Yes (Other)
  Sender: FDA-Public Use
  Company Number: US-BAYER-2014-004592

PATIENT
  Age: 22 Year
  Sex: Female

DRUGS (3)
  1. YAZ [Suspect]
  2. TRICYCLEN [Concomitant]
  3. IBUPROFEN [Concomitant]

REACTIONS (2)
  - Cholecystectomy [None]
  - Cholecystitis chronic [None]
